FAERS Safety Report 9578397 (Version 1)
Quarter: 2013Q4

REPORT INFORMATION
  Report Type: Spontaneous
  Country: US (occurrence: US)
  Receive Date: 20131001
  Receipt Date: 20131001
  Transmission Date: 20140711
  Serious: No
  Sender: FDA-Public Use
  Company Number: US-AMGEN-USASP2013013077

PATIENT
  Age: 56 Year
  Sex: Male
  Weight: 78.01 kg

DRUGS (9)
  1. ENBREL [Suspect]
     Indication: RHEUMATOID ARTHRITIS
     Dosage: 50 MG/ML, QWK
     Route: 058
  2. VITAMIN D                          /00107901/ [Concomitant]
     Dosage: 1000 UNIT, UNK
     Route: 048
  3. FISH OIL CONCENTRATE [Concomitant]
     Dosage: UNK
     Route: 048
  4. LEVOTHYROXIN [Concomitant]
     Dosage: 100 MUG OT
  5. METFORMIN [Concomitant]
     Dosage: 500 MG, UNK
     Route: 048
  6. SIMVASTATIN [Concomitant]
     Dosage: 5 MG, UNK
     Route: 048
  7. TYLENOL                            /00020001/ [Concomitant]
     Dosage: 500 MG, UNK
     Route: 048
  8. ASA [Concomitant]
     Dosage: 81 MG EC, UNK
     Route: 048
  9. HUMIRA [Concomitant]
     Dosage: UNK

REACTIONS (1)
  - Drug ineffective [Unknown]
